FAERS Safety Report 6217700-3 (Version None)
Quarter: 2009Q2

REPORT INFORMATION
  Report Type: 
  Country: None (occurrence: None)
  Receive Date: 20090603
  Receipt Date: 20090603
  Transmission Date: 20091009
  Serious: No
  Sender: FDA-Public Use
  Company Number: None

PATIENT
  Sex: Male
  Weight: 65.7716 kg

DRUGS (2)
  1. ROSADERM CLEANSER [Suspect]
     Indication: ACNE
     Dosage: 1-2 G 2X/DAY WASH FACIAL SKIN
  2. ROSADERM CLEANSER [Suspect]
     Indication: SEBORRHOEIC DERMATITIS
     Dosage: 1-2 G 2X/DAY WASH FACIAL SKIN

REACTIONS (2)
  - ACNE [None]
  - PRODUCT SUBSTITUTION ISSUE [None]
